FAERS Safety Report 8244045-2 (Version None)
Quarter: 2012Q1

REPORT INFORMATION
  Report Type: 
  Country: None (occurrence: None)
  Receive Date: 20120329
  Receipt Date: 20120314
  Transmission Date: 20120608
  Serious: Yes (Congenital Anomaly)
  Sender: FDA-Public Use
  Company Number: DE-ARROW GEN-2012-04906

PATIENT
  Sex: Male
  Weight: 3.335 kg

DRUGS (2)
  1. FOLIC ACID [Concomitant]
     Indication: PROPHYLAXIS OF NEURAL TUBE DEFECT
     Dosage: 5 MG, DAILY
     Route: 064
     Dates: start: 20090410, end: 20120106
  2. LAMOTRIGINE [Suspect]
     Indication: EPILEPSY
     Dosage: ^350 [MG/D]/ GW 0-13: 100 MG/D; GW 13-38.5: 350 MG/D^]
     Route: 064
     Dates: start: 20090410, end: 20100106

REACTIONS (2)
  - ATRIAL SEPTAL DEFECT [None]
  - VENTRICULAR SEPTAL DEFECT [None]
